FAERS Safety Report 5842308-9 (Version None)
Quarter: 2008Q3

REPORT INFORMATION
  Report Type: 
  Country: None (occurrence: None)
  Receive Date: 20080812
  Receipt Date: 20080804
  Transmission Date: 20090109
  Serious: Yes (Other)
  Sender: FDA-Public Use
  Company Number: US-AVENTIS-200811312US

PATIENT
  Sex: Female
  Weight: 71.81 kg

DRUGS (20)
  1. DIABETA [Suspect]
     Dosage: DOSE: 2 (5 MG) EACH
     Dates: start: 19880101
  2. GLYBURIDE [Suspect]
     Dosage: DOSE: UNK
     Dates: start: 20080117, end: 20080120
  3. GLUCOPHAGE [Suspect]
     Dosage: DOSE: UNK
  4. GLUCOPHAGE [Suspect]
     Dosage: DOSE: 2 PER DAY
  5. GLUCOPHAGE [Suspect]
     Dosage: DOSE: 2 PER DAY
     Dates: start: 20080117, end: 20080122
  6. JANUMET [Suspect]
     Dosage: DOSE: UNK
  7. GLYBURIDE AND METFORMIN HCL [Suspect]
     Dosage: DOSE: 5/1000, 2 PER DAY
  8. GLYBURIDE AND METFORMIN HCL [Suspect]
     Dosage: DOSE: UNK
     Dates: start: 20080117, end: 20080120
  9. DIOVANE [Concomitant]
     Dosage: DOSE QUANTITY: 1
  10. VERAPAMIL [Concomitant]
     Dosage: DOSE QUANTITY: 1
  11. CENTRUM SILVER [Concomitant]
     Dosage: DOSE: UNK
  12. LIPITOR [Concomitant]
     Dosage: DOSE: UNK
  13. ASCORBIC ACID [Concomitant]
     Dosage: DOSE: UNK
  14. RETINOL [Concomitant]
     Dosage: DOSE: UNK
  15. ZINC [Concomitant]
     Dosage: DOSE: UNK
  16. CALCIUM [Concomitant]
     Dosage: DOSE: UNK
  17. VITAMINS NOS [Concomitant]
     Dosage: DOSE: UNK
  18. MINERALS NOS [Concomitant]
     Dosage: DOSE: UNK
  19. VITAMIN B NOS [Concomitant]
     Dosage: DOSE: UNK
  20. TOCOPHEROL CONCENTRATE CAP [Concomitant]
     Dosage: DOSE: UNK

REACTIONS (6)
  - DIZZINESS [None]
  - FEELING ABNORMAL [None]
  - HEADACHE [None]
  - NAUSEA [None]
  - PALPITATIONS [None]
  - PRURITUS GENERALISED [None]
